FAERS Safety Report 14471367 (Version 2)
Quarter: 2018Q1

REPORT INFORMATION
  Report Type: Report from Study
  Country: BR (occurrence: BR)
  Receive Date: 20180131
  Receipt Date: 20180327
  Transmission Date: 20180509
  Serious: Yes (Other)
  Sender: FDA-Public Use
  Company Number: BR-ROCHE-2062536

PATIENT
  Age: 70 Year
  Sex: Female
  Weight: 60 kg

DRUGS (6)
  1. METICORTEN [Concomitant]
     Active Substance: PREDNISONE
     Indication: PRURITUS
     Route: 065
     Dates: start: 20171201
  2. XOLAIR [Suspect]
     Active Substance: OMALIZUMAB
     Indication: URTICARIA
     Route: 058
     Dates: start: 20171201
  3. XOLAIR [Suspect]
     Active Substance: OMALIZUMAB
     Indication: CHRONIC SPONTANEOUS URTICARIA
     Route: 058
     Dates: start: 20180105
  4. XOLAIR [Suspect]
     Active Substance: OMALIZUMAB
     Route: 058
     Dates: start: 20180106
  5. METICORTEN [Concomitant]
     Active Substance: PREDNISONE
     Indication: URTICARIA
  6. RUPATADINE [Concomitant]
     Active Substance: RUPATADINE
     Indication: URTICARIA
     Dosage: 10 MG, QD (STARTED 1 MONTH AGO)
     Route: 048

REACTIONS (8)
  - Urticaria [Not Recovered/Not Resolved]
  - Skin plaque [Not Recovered/Not Resolved]
  - Skin discolouration [Unknown]
  - Feeling abnormal [Unknown]
  - Pruritus [Not Recovered/Not Resolved]
  - Drug ineffective [Unknown]
  - Haematoma [Not Recovered/Not Resolved]
  - Blister [Unknown]

NARRATIVE: CASE EVENT DATE: 20180106
